FAERS Safety Report 8178591-7 (Version None)
Quarter: 2012Q1

REPORT INFORMATION
  Report Type: 
  Country: None (occurrence: None)
  Receive Date: 20120301
  Receipt Date: 20120223
  Transmission Date: 20120608
  Serious: Yes (Hospitalization)
  Sender: FDA-Public Use
  Company Number: PHHY2012FR010668

PATIENT
  Sex: Male

DRUGS (7)
  1. VALACICLOVIR [Concomitant]
  2. ALLOPURINOL [Concomitant]
  3. VALSARTAN  AND HYDROCHLOROTHIAZIDE [Suspect]
     Indication: HYPERTENSION
     Dosage: 1 DF, QD
     Route: 048
     Dates: end: 20111225
  4. AMIODARONE HCL [Suspect]
     Indication: ATRIAL FIBRILLATION
     Dosage: 200 MG, QD
     Route: 048
     Dates: start: 20111001, end: 20111225
  5. TIAPRIDE MYLAN [Suspect]
     Route: 048
  6. DIGOXIN [Suspect]
     Indication: ATRIAL FIBRILLATION
     Dosage: 0.125 MG, QD
     Route: 048
     Dates: start: 20111001, end: 20111225
  7. ARICEPT [Suspect]
     Indication: DEMENTIA ALZHEIMER'S TYPE
     Route: 048

REACTIONS (6)
  - AGITATION [None]
  - BUNDLE BRANCH BLOCK BILATERAL [None]
  - DEHYDRATION [None]
  - ATRIAL FIBRILLATION [None]
  - ASTHENIA [None]
  - BRADYCARDIA [None]
